FAERS Safety Report 5446811-5 (Version None)
Quarter: 2007Q3

REPORT INFORMATION
  Report Type: 
  Country: None (occurrence: None)
  Receive Date: 20070802
  Receipt Date: 20070207
  Transmission Date: 20080115
  Serious: Yes (Hospitalization)
  Sender: FDA-Public Use
  Company Number: MIN-00138

PATIENT
  Age: 35 Year
  Sex: Female
  Weight: 77.1115 kg

DRUGS (3)
  1. MINOCIN [Suspect]
     Indication: ACNE
     Dosage: 100 MG, BID, ORAL
     Route: 048
     Dates: start: 20061106, end: 20061112
  2. TRINESSA (NORGESTIMATE AND ETHINYL ESTRADIOL) [Concomitant]
  3. CELEXA [Concomitant]

REACTIONS (1)
  - BENIGN INTRACRANIAL HYPERTENSION [None]
